FAERS Safety Report 11574673 (Version 1)
Quarter: 2015Q3

REPORT INFORMATION
  Report Type: Spontaneous
  Country: US (occurrence: US)
  Receive Date: 20150916
  Receipt Date: 20150916
  Transmission Date: 20151125
  Serious: No
  Sender: FDA-Public Use
  Company Number: US-ELI_LILLY_AND_COMPANY-US200911002792

PATIENT
  Sex: Female

DRUGS (5)
  1. FORTEO [Suspect]
     Active Substance: TERIPARATIDE
     Indication: OSTEOPOROSIS
     Dosage: 20 UG, DAILY (1/D)
     Dates: start: 20070731, end: 200907
  2. DARVOCET [Concomitant]
     Active Substance: ACETAMINOPHEN\PROPOXYPHENE HYDROCHLORIDE
     Indication: BACK PAIN
  3. MOTRIN [Concomitant]
     Active Substance: IBUPROFEN
     Indication: BACK PAIN
  4. CALCIUM [Concomitant]
     Active Substance: CALCIUM
     Dosage: 600 MG, 2/D
  5. VITAMIN D [Concomitant]
     Active Substance: CHOLECALCIFEROL
     Dosage: UNK, WEEKLY (1/W)

REACTIONS (6)
  - Back pain [Unknown]
  - Muscular weakness [Unknown]
  - Pain in extremity [Recovering/Resolving]
  - Spinal disorder [Unknown]
  - Body height decreased [Unknown]
  - Scoliosis [Unknown]

NARRATIVE: CASE EVENT DATE: 2009
